FAERS Safety Report 4808597-4 (Version None)
Quarter: 2005Q4

REPORT INFORMATION
  Report Type: 
  Country: None (occurrence: None)
  Receive Date: 20051021
  Receipt Date: 20020926
  Transmission Date: 20060501
  Serious: No
  Sender: FDA-Public Use
  Company Number: FR_020901479

PATIENT
  Age: 69 Year
  Sex: Male
  Weight: 70 kg

DRUGS (7)
  1. ZYPREXA [Suspect]
     Indication: PSYCHOTIC DISORDER
     Dosage: 10 MG/ DAY
     Dates: start: 20020801, end: 20020924
  2. GLUCOPHAGE [Concomitant]
  3. AMARYL [Concomitant]
  4. TRANXENE [Concomitant]
  5. EQUANIL [Concomitant]
  6. PAROXETINE HYDROCHLORIDE [Concomitant]
  7. NEO-MERCAZOLE TAB [Concomitant]

REACTIONS (4)
  - ALANINE AMINOTRANSFERASE DECREASED [None]
  - EOSINOPHILIA [None]
  - LYMPHOCYTE COUNT DECREASED [None]
  - NEUTROPHIL PERCENTAGE DECREASED [None]
